FAERS Safety Report 22520021 (Version 1)
Quarter: 2023Q2

REPORT INFORMATION
  Report Type: Spontaneous
  Country: DE (occurrence: DE)
  Receive Date: 20230605
  Receipt Date: 20230605
  Transmission Date: 20230721
  Serious: Yes (Other)
  Sender: FDA-Public Use
  Company Number: None

PATIENT
  Sex: Female

DRUGS (1)
  1. CYTOTEC [Suspect]
     Active Substance: MISOPROSTOL
     Indication: Labour induction
     Dosage: HALF TABLET
     Route: 064
     Dates: start: 20160302, end: 20160302

REACTIONS (5)
  - Maternal exposure during pregnancy [Unknown]
  - Neonatal hypoxia [Unknown]
  - Hypotonia [Not Recovered/Not Resolved]
  - Nervous system disorder [Unknown]
  - Disturbance in attention [Not Recovered/Not Resolved]
